FAERS Safety Report 10636025 (Version 1)
Quarter: 2014Q4

REPORT INFORMATION
  Report Type: Spontaneous
  Country: IT (occurrence: IT)
  Receive Date: 20141205
  Receipt Date: 20141205
  Transmission Date: 20150529
  Serious: Yes (Hospitalization)
  Sender: FDA-Public Use
  Company Number: IT-ACTAVIS-2014-26093

PATIENT
  Age: 65 Year
  Sex: Male
  Weight: 70 kg

DRUGS (3)
  1. VERSATIS [Suspect]
     Active Substance: LIDOCAINE
     Indication: PAIN
     Dosage: 5% MEDICATED PATCH
     Route: 065
  2. GABAPENTIN (UNKNOWN) [Suspect]
     Active Substance: GABAPENTIN
     Indication: PAIN
     Dosage: 200 MG, DAILY
     Route: 048
     Dates: start: 20140905, end: 20140915
  3. NORMAST [Concomitant]
     Indication: SUPPLEMENTATION THERAPY
     Dosage: 1800 MG, DAILY
     Route: 048
     Dates: start: 20140905, end: 20140915

REACTIONS (5)
  - Disorientation [Recovered/Resolved]
  - Coma [Recovered/Resolved]
  - Hallucination [Recovered/Resolved]
  - Tremor [Recovered/Resolved]
  - Somnolence [Recovered/Resolved]

NARRATIVE: CASE EVENT DATE: 20140909
